FAERS Safety Report 25150522 (Version 6)
Quarter: 2025Q4

REPORT INFORMATION
  Report Type: Report from Study
  Country: US (occurrence: US)
  Receive Date: 20250402
  Receipt Date: 20251208
  Transmission Date: 20260117
  Serious: Yes (Other)
  Sender: TAKEDA
  Company Number: US-TAKEDA-2025TUS033160

PATIENT
  Age: 7 Year
  Sex: Male

DRUGS (3)
  1. VON WILLEBRAND FACTOR (RECOMBINANT) [Suspect]
     Active Substance: VON WILLEBRAND FACTOR (RECOMBINANT)
     Indication: Prophylaxis
     Dosage: 1300 INTERNATIONAL UNIT, 1/WEEK
  2. VON WILLEBRAND FACTOR (RECOMBINANT) [Suspect]
     Active Substance: VON WILLEBRAND FACTOR (RECOMBINANT)
     Dosage: 1300 INTERNATIONAL UNIT
  3. VON WILLEBRAND FACTOR (RECOMBINANT) [Suspect]
     Active Substance: VON WILLEBRAND FACTOR (RECOMBINANT)
     Dosage: 1300 INTERNATIONAL UNIT

REACTIONS (6)
  - Epistaxis [Recovered/Resolved]
  - Haemorrhage [Unknown]
  - Haematoma [Not Recovered/Not Resolved]
  - Limb injury [Unknown]
  - Back pain [Unknown]
  - Viral infection [Recovering/Resolving]

NARRATIVE: CASE EVENT DATE: 20250328
